FAERS Safety Report 13174319 (Version 2)
Quarter: 2017Q1

REPORT INFORMATION
  Report Type: Spontaneous
  Country: FO (occurrence: FO)
  Receive Date: 20170201
  Receipt Date: 20170207
  Transmission Date: 20170428
  Serious: Yes (Life-Threatening, Hospitalization)
  Sender: FDA-Public Use
  Company Number: FO-PFIZER INC-2017039957

PATIENT
  Age: 75 Year
  Sex: Male

DRUGS (6)
  1. MOXIFLOXACIN. [Concomitant]
     Active Substance: MOXIFLOXACIN
     Indication: AORTIC ANEURYSM
     Dosage: 400 MG, DAILY
     Route: 048
  2. FUSIDIC ACID [Interacting]
     Active Substance: FUSIDIC ACID
     Indication: AORTIC ANEURYSM
     Dosage: 500 MG, 2X/DAY
     Route: 048
  3. FUSIDIC ACID [Interacting]
     Active Substance: FUSIDIC ACID
     Indication: DEVICE RELATED INFECTION
  4. RIVAROXABAN [Concomitant]
     Active Substance: RIVAROXABAN
     Indication: ATRIAL FIBRILLATION
     Dosage: UNK
  5. ATORVASTATIN CALCIUM. [Suspect]
     Active Substance: ATORVASTATIN CALCIUM
     Indication: HYPERLIPIDAEMIA
     Dosage: 80 MG, DAILY
  6. MOXIFLOXACIN. [Concomitant]
     Active Substance: MOXIFLOXACIN
     Indication: DEVICE RELATED INFECTION

REACTIONS (2)
  - Drug interaction [Recovering/Resolving]
  - Rhabdomyolysis [Recovering/Resolving]
